FAERS Safety Report 13129162 (Version 2)
Quarter: 2017Q1

REPORT INFORMATION
  Report Type: Spontaneous
  Country: FR (occurrence: FR)
  Receive Date: 20170119
  Receipt Date: 20170125
  Transmission Date: 20170428
  Serious: Yes (Disabling, Other)
  Sender: FDA-Public Use
  Company Number: FR-SUN PHARMACEUTICAL INDUSTRIES LTD-2017RR-131268

PATIENT
  Age: 27 Year
  Sex: Female

DRUGS (1)
  1. IBUPROFEN. [Suspect]
     Active Substance: IBUPROFEN
     Indication: MIGRAINE
     Dosage: UNK
     Route: 065

REACTIONS (6)
  - Somnolence [Unknown]
  - Dry mouth [Unknown]
  - Dizziness [Unknown]
  - Nausea [Unknown]
  - Self-medication [Unknown]
  - Paraesthesia [Unknown]
